FAERS Safety Report 25983008 (Version 3)
Quarter: 2025Q4

REPORT INFORMATION
  Report Type: Spontaneous
  Country: JP (occurrence: JP)
  Receive Date: 20251031
  Receipt Date: 20251117
  Transmission Date: 20260117
  Serious: Yes (Hospitalization)
  Sender: LEO PHARM
  Company Number: JP-LEO Pharma-383819

PATIENT
  Age: 88 Year
  Sex: Female

DRUGS (1)
  1. TACLONEX [Suspect]
     Active Substance: BETAMETHASONE DIPROPIONATE\CALCIPOTRIENE\CALCIPOTRIENE HYDRATE
     Indication: Psoriasis

REACTIONS (1)
  - Hospitalisation [Recovered/Resolved]
